FAERS Safety Report 13625644 (Version 1)
Quarter: 2017Q2

REPORT INFORMATION
  Report Type: Spontaneous
  Country: US (occurrence: US)
  Receive Date: 20170607
  Receipt Date: 20170607
  Transmission Date: 20170830
  Serious: Yes (Death, Hospitalization)
  Sender: FDA-Public Use
  Company Number: US-PFIZER INC-2017243844

PATIENT
  Age: 82 Year
  Sex: Female

DRUGS (1)
  1. IBRANCE [Suspect]
     Active Substance: PALBOCICLIB
     Dosage: 125 MG, CYCLIC (QD X 21 DAYS THEN OFF 7 DAYS)
     Route: 048
     Dates: start: 20170512

REACTIONS (4)
  - Contusion [Fatal]
  - Pneumonia [Fatal]
  - White blood cell count decreased [Fatal]
  - Peripheral swelling [Fatal]
